FAERS Safety Report 18887416 (Version 6)
Quarter: 2022Q1

REPORT INFORMATION
  Report Type: Spontaneous
  Country: ES (occurrence: ES)
  Receive Date: 20210212
  Receipt Date: 20220105
  Transmission Date: 20220423
  Serious: Yes (Life-Threatening, Hospitalization, Other)
  Sender: FDA-Public Use
  Company Number: ES-MACLEODS PHARMA UK LTD-MAC2021029893

PATIENT
  Age: 30 Year
  Sex: Male

DRUGS (4)
  1. SILDENAFIL CITRATE [Suspect]
     Active Substance: SILDENAFIL CITRATE
     Indication: Erectile dysfunction
     Dosage: UP TO 200 MG, PILLS (X4) IN ONE SINGLE DOSE OCCASIONALLY WITH RECREATIONAL USE
     Route: 048
  2. LEVETIRACETAM [Concomitant]
     Active Substance: LEVETIRACETAM
     Indication: Seizure
     Dosage: 1000 MG
  3. LACOSAMIDE [Concomitant]
     Active Substance: LACOSAMIDE
     Indication: Seizure
     Dosage: 200 MG
  4. DIAZEPAM [Concomitant]
     Active Substance: DIAZEPAM
     Indication: Seizure
     Route: 042

REACTIONS (6)
  - Intentional overdose [Unknown]
  - Status epilepticus [Unknown]
  - Bradyphrenia [Unknown]
  - Myoclonus [Recovering/Resolving]
  - Ocular discomfort [Unknown]
  - Self-medication [Unknown]
